FAERS Safety Report 25589051 (Version 2)
Quarter: 2025Q3

REPORT INFORMATION
  Report Type: Spontaneous
  Country: US (occurrence: US)
  Receive Date: 20250722
  Receipt Date: 20250731
  Transmission Date: 20251020
  Serious: Yes (Other)
  Sender: ALKEM
  Company Number: CN-ALKEM LABORATORIES LIMITED-CN-ALKEM-2025-07542

PATIENT
  Age: 14 Year
  Sex: Male
  Weight: 47.1 kg

DRUGS (3)
  1. DEXMETHYLPHENIDATE [Interacting]
     Active Substance: DEXMETHYLPHENIDATE
     Indication: Attention deficit hyperactivity disorder
     Route: 065
  2. LETROZOLE [Interacting]
     Active Substance: LETROZOLE
     Indication: Growth hormone deficiency
     Route: 065
  3. SOMATROPIN [Interacting]
     Active Substance: SOMATROPIN
     Indication: Growth hormone deficiency
     Route: 065

REACTIONS (2)
  - Drug interaction [Unknown]
  - Rhabdomyolysis [Recovered/Resolved]
